FAERS Safety Report 18643681 (Version 1)
Quarter: 2020Q4

REPORT INFORMATION
  Report Type: Spontaneous
  Country: US (occurrence: US)
  Receive Date: 20201221
  Receipt Date: 20201221
  Transmission Date: 20210114
  Serious: No
  Sender: FDA-Public Use
  Company Number: None

PATIENT
  Age: 54 Year
  Sex: Female

DRUGS (19)
  1. CAPECITABINE 500 MG TABLET [Suspect]
     Active Substance: CAPECITABINE
     Route: 048
  2. CALCIUM + D3 [Concomitant]
     Active Substance: CALCIUM\CHOLECALCIFEROL
  3. MELATONIN [Concomitant]
     Active Substance: MELATONIN
  4. DOCUSATE SODIUM. [Concomitant]
     Active Substance: DOCUSATE SODIUM
  5. GABAPENTIN. [Concomitant]
     Active Substance: GABAPENTIN
  6. MIRALAX MIX-IN PAX [Concomitant]
  7. POTASSIUM CHLORIDE ER [Concomitant]
     Active Substance: POTASSIUM CHLORIDE
  8. ATENOLOL. [Concomitant]
     Active Substance: ATENOLOL
  9. HERCEPTIN [Concomitant]
     Active Substance: TRASTUZUMAB
  10. LOMOTIL [Concomitant]
     Active Substance: ATROPINE SULFATE\DIPHENOXYLATE HYDROCHLORIDE
  11. MORPHINE SULFATE ER [Concomitant]
     Active Substance: MORPHINE SULFATE
  12. LORATADINE. [Concomitant]
     Active Substance: LORATADINE
  13. ONDANSETRON [Concomitant]
     Active Substance: ONDANSETRON
  14. LIDOCAINE. [Concomitant]
     Active Substance: LIDOCAINE
  15. CYCLOBENZAPRINE HC [Concomitant]
  16. ASPIRIN ADULT LOW DOSE [Concomitant]
     Active Substance: ASPIRIN
  17. FAMOTIDINE. [Concomitant]
     Active Substance: FAMOTIDINE
  18. LORAZEPAM. [Concomitant]
     Active Substance: LORAZEPAM
  19. OLMESARTAN MEDOXOMIL-HCTZ [Concomitant]

REACTIONS (1)
  - Disease progression [None]

NARRATIVE: CASE EVENT DATE: 20201221
